FAERS Safety Report 21071535 (Version 1)
Quarter: 2022Q3

REPORT INFORMATION
  Report Type: Spontaneous
  Country: US (occurrence: US)
  Receive Date: 20220712
  Receipt Date: 20220712
  Transmission Date: 20221027
  Serious: No
  Sender: FDA-Public Use
  Company Number: US-MYLANLABS-2022M1049978

PATIENT
  Age: 86 Year
  Sex: Male

DRUGS (6)
  1. METHIMAZOLE [Suspect]
     Active Substance: METHIMAZOLE
     Indication: Hyperthyroidism
     Dosage: 5 MILLIGRAM, QD
     Route: 065
     Dates: start: 20220615
  2. METHIMAZOLE [Suspect]
     Active Substance: METHIMAZOLE
     Indication: Basedow^s disease
  3. ASPIRIN [Concomitant]
     Active Substance: ASPIRIN
     Dosage: UNK
     Route: 065
  4. ATORVASTATIN [Concomitant]
     Active Substance: ATORVASTATIN
     Dosage: 20 MILLIGRAM
     Route: 065
  5. NOVOLOG [Concomitant]
     Active Substance: INSULIN ASPART
     Dosage: UNK, TID
     Route: 065
  6. LEVEMIR [Concomitant]
     Active Substance: INSULIN DETEMIR
     Dosage: UNK , QD
     Route: 048

REACTIONS (6)
  - Pain in extremity [Unknown]
  - Hypoaesthesia [Unknown]
  - Gait disturbance [Unknown]
  - Abdominal discomfort [Unknown]
  - Dry eye [Unknown]
  - Taste disorder [Unknown]

NARRATIVE: CASE EVENT DATE: 20220615
